FAERS Safety Report 8293954-7 (Version None)
Quarter: 2012Q2

REPORT INFORMATION
  Report Type: 
  Country: None (occurrence: None)
  Receive Date: 20120418
  Receipt Date: 20120410
  Transmission Date: 20120825
  Serious: Yes (Other)
  Sender: FDA-Public Use
  Company Number: US-BAYER-2011-072829

PATIENT
  Age: 31 Year
  Sex: Female
  Weight: 117.91 kg

DRUGS (13)
  1. SEROQUEL [Concomitant]
     Indication: MAJOR DEPRESSION
  2. YASMIN [Suspect]
     Indication: POLYCYSTIC OVARIES
     Dosage: UNK
     Dates: start: 20050301, end: 20080301
  3. NSAID'S [Concomitant]
     Indication: ANALGESIC THERAPY
     Dosage: UNK UNK, PRN
  4. CREON [Concomitant]
     Indication: PANCREATITIS
     Dosage: 12,000 USP
     Dates: start: 20050701
  5. PRILOSEC [Concomitant]
     Indication: GASTROOESOPHAGEAL REFLUX DISEASE
     Dosage: UNK
     Dates: start: 20060101, end: 20090101
  6. ULTRAM [Concomitant]
     Indication: PAIN
     Dosage: 50 MG, UNK
     Dates: start: 20050701
  7. ATENOLOL [Concomitant]
     Indication: HYPERTENSION
     Dosage: 50 MG, UNK
     Dates: start: 19990101
  8. TRAZODONE [Concomitant]
     Indication: POST-TRAUMATIC STRESS DISORDER
     Dosage: 100 MG, UNK
     Dates: start: 20050101
  9. ALBUTEROL [Concomitant]
     Indication: ASTHMA
     Dosage: OFF AND ON
     Dates: start: 19900101
  10. SEROQUEL [Concomitant]
     Indication: POST-TRAUMATIC STRESS DISORDER
     Dosage: 200 MG, UNK
     Dates: start: 20050101
  11. TRAZODONE [Concomitant]
     Indication: MAJOR DEPRESSION
  12. CITALOPRAM [Concomitant]
     Indication: POST-TRAUMATIC STRESS DISORDER
     Dosage: 40 MG, UNK
     Dates: start: 20050101
  13. CITALOPRAM [Concomitant]
     Indication: MAJOR DEPRESSION

REACTIONS (4)
  - PAIN IN EXTREMITY [None]
  - ANXIETY [None]
  - ANHEDONIA [None]
  - DEEP VEIN THROMBOSIS [None]
